FAERS Safety Report 15681234 (Version 2)
Quarter: 2018Q4

REPORT INFORMATION
  Report Type: Spontaneous
  Country: JP (occurrence: JP)
  Receive Date: 20181203
  Receipt Date: 20181206
  Transmission Date: 20190205
  Serious: Yes (Death, Life-Threatening, Hospitalization, Other)
  Sender: FDA-Public Use
  Company Number: JP-PFIZER INC-2018492917

PATIENT
  Age: 83 Year
  Sex: Male

DRUGS (14)
  1. BICALUTAMIDE. [Concomitant]
     Active Substance: BICALUTAMIDE
     Indication: PROSTATE CANCER
     Dosage: UNK
  2. RECOMBINANT HUMAN THROMBOMODULIN [Concomitant]
     Indication: DISSEMINATED INTRAVASCULAR COAGULATION
     Dosage: UNK
  3. BICALUTAMIDE. [Concomitant]
     Active Substance: BICALUTAMIDE
     Indication: PRURITUS
  4. LEVOTRIIODOTHYRONINE [Concomitant]
     Indication: MYXOEDEMA COMA
     Dosage: 30 UG, 1X/DAY
     Route: 048
  5. LEVOTRIIODOTHYRONINE [Concomitant]
     Dosage: 15 UG, 1X/DAY
     Route: 048
  6. LEVOTRIIODOTHYRONINE [Concomitant]
     Dosage: 30 UG, 1X/DAY
     Route: 045
  7. CATECHOLAMINE [Concomitant]
     Indication: SINUS NODE DYSFUNCTION
     Dosage: UNK(CONTINUOUS INFUSION)
  8. MEROPENEM. [Suspect]
     Active Substance: MEROPENEM
     Indication: PANCREATITIS ACUTE
     Dosage: UNK
  9. LEVOTHYROXINE. [Concomitant]
     Active Substance: LEVOTHYROXINE
     Dosage: 100 UG, 1X/DAY
     Route: 045
  10. SILODOSIN. [Concomitant]
     Active Substance: SILODOSIN
     Indication: PROSTATE CANCER
     Dosage: UNK
  11. SILODOSIN. [Concomitant]
     Active Substance: SILODOSIN
     Indication: PRURITUS
  12. VANCOMYCIN [Suspect]
     Active Substance: VANCOMYCIN
     Indication: PANCREATITIS ACUTE
     Dosage: UNK
  13. LEVOTHYROXINE. [Concomitant]
     Active Substance: LEVOTHYROXINE
     Indication: MYXOEDEMA COMA
     Dosage: 200 UG, 1X/DAY
     Route: 048
  14. LEVOTHYROXINE. [Concomitant]
     Active Substance: LEVOTHYROXINE
     Indication: MYXOEDEMA COMA
     Dosage: 400 UG, 1X/DAY
     Route: 054

REACTIONS (1)
  - Drug ineffective [Fatal]
